FAERS Safety Report 16072222 (Version 2)
Quarter: 2020Q2

REPORT INFORMATION
  Report Type: Spontaneous
  Country: US (occurrence: US)
  Receive Date: 20190314
  Receipt Date: 20200610
  Transmission Date: 20200713
  Serious: No
  Sender: FDA-Public Use
  Company Number: US-HTU-2018US018024

PATIENT
  Sex: Male

DRUGS (2)
  1. VALCHLOR [Suspect]
     Active Substance: MECHLORETHAMINE
     Indication: CUTANEOUS T-CELL LYMPHOMA
     Dosage: THIN FILM TO THE AFFECTED SKIN, DAILY
     Route: 061
     Dates: start: 20181029
  2. VALCHLOR [Suspect]
     Active Substance: MECHLORETHAMINE
     Dosage: UNK, 1/WEEK

REACTIONS (12)
  - Skin haemorrhage [Unknown]
  - Scab [Unknown]
  - Pain of skin [Not Recovered/Not Resolved]
  - Dry skin [Not Recovered/Not Resolved]
  - Insomnia [Unknown]
  - Skin exfoliation [Unknown]
  - Skin irritation [Unknown]
  - Off label use [Unknown]
  - Pruritus [Unknown]
  - Application site reaction [Not Recovered/Not Resolved]
  - Application site irritation [Unknown]
  - Application site haemorrhage [Unknown]
